FAERS Safety Report 4502902-4 (Version None)
Quarter: 2004Q4

REPORT INFORMATION
  Report Type: 
  Country: None (occurrence: None)
  Receive Date: 20041117
  Receipt Date: 20041105
  Transmission Date: 20050328
  Serious: Yes (Other)
  Sender: FDA-Public Use
  Company Number: US-BRISTOL-MYERS SQUIBB COMPANY-12766713

PATIENT
  Age: 44 Year
  Sex: Female

DRUGS (3)
  1. SERZONE [Suspect]
     Indication: DEPRESSION
     Dates: start: 20000329, end: 20020212
  2. XANAX [Concomitant]
  3. VICODIN [Concomitant]

REACTIONS (8)
  - ABDOMINAL DISCOMFORT [None]
  - FATIGUE [None]
  - HEPATIC ENZYME INCREASED [None]
  - HEPATIC FIBROSIS [None]
  - HEPATIC STEATOSIS [None]
  - TOOTHACHE [None]
  - UTERINE LEIOMYOMA [None]
  - WEIGHT INCREASED [None]
